FAERS Safety Report 10213112 (Version 2)
Quarter: 2014Q2

REPORT INFORMATION
  Report Type: Report from Study
  Country: CA (occurrence: CA)
  Receive Date: 20140603
  Receipt Date: 20140603
  Transmission Date: 20141212
  Serious: Yes (Other)
  Sender: FDA-Public Use
  Company Number: CA-ROCHE-1373228

PATIENT
  Age: 83 Year
  Sex: Female

DRUGS (12)
  1. ACTEMRA [Suspect]
     Indication: RHEUMATOID ARTHRITIS
     Route: 042
     Dates: start: 20111212
  2. ACTEMRA [Suspect]
     Route: 042
     Dates: start: 20130122
  3. ACTEMRA [Suspect]
     Route: 042
     Dates: start: 20130425
  4. ACTEMRA [Suspect]
     Route: 042
     Dates: start: 20130715
  5. ACTEMRA [Suspect]
     Route: 042
     Dates: start: 20131015
  6. ACTEMRA [Suspect]
     Route: 042
     Dates: start: 201205, end: 201301
  7. ACTEMRA [Suspect]
     Route: 042
     Dates: start: 201305, end: 201310
  8. ACTEMRA [Suspect]
     Route: 042
     Dates: start: 201111
  9. PLAQUENIL [Concomitant]
  10. ACTONEL [Concomitant]
  11. ELAVIL (CANADA) [Concomitant]
  12. SYNTHROID [Concomitant]

REACTIONS (5)
  - Macrocytosis [Recovered/Resolved]
  - Bicytopenia [Recovered/Resolved]
  - Platelet count decreased [Recovered/Resolved]
  - Red blood cell count abnormal [Recovered/Resolved]
  - White blood cell count decreased [Recovered/Resolved]
